FAERS Safety Report 6345142-9 (Version None)
Quarter: 2009Q3

REPORT INFORMATION
  Report Type: 
  Country: None (occurrence: None)
  Receive Date: 20090909
  Receipt Date: 20070802
  Transmission Date: 20100115
  Serious: Yes (Other)
  Sender: FDA-Public Use
  Company Number: US-ASTRAZENECA-2007UW12109

PATIENT
  Age: 16481 Day
  Sex: Female
  Weight: 137 kg

DRUGS (23)
  1. SEROQUEL [Suspect]
     Indication: SCHIZOPHRENIA
     Dosage: NOT REPORTED
     Route: 048
     Dates: start: 20000308, end: 20071201
  2. SEROQUEL [Suspect]
     Indication: PSYCHOTIC DISORDER
     Dosage: NOT REPORTED
     Route: 048
     Dates: start: 20000308, end: 20071201
  3. SEROQUEL [Suspect]
     Dosage: 50 MG - 900 MG
     Route: 048
     Dates: start: 20000308
  4. SEROQUEL [Suspect]
     Dosage: 50 MG - 900 MG
     Route: 048
     Dates: start: 20000308
  5. VICODIN [Concomitant]
     Indication: PAIN
     Dosage: 1500 MG EVERY FOUR TO SIX HOURS
  6. TRAZODONE [Concomitant]
     Indication: INSOMNIA
     Dosage: HALF TO ONE AT BEDTIME AS NEEDED
  7. PAXIL [Concomitant]
  8. CHLORPROMAZINE [Concomitant]
  9. WELLBUTRIN XL [Concomitant]
     Indication: SLEEP DISORDER
  10. ABILIFY [Concomitant]
  11. TOPROL-XL [Concomitant]
  12. TRICOR [Concomitant]
  13. VYTORIN [Concomitant]
     Dosage: 10/20 ONE AT NIGHT
  14. DIOVAN HCT [Concomitant]
     Dosage: 160/ 12.5 ONE EVERY MORNING
  15. NEURONTIN [Concomitant]
     Indication: DIABETIC NEUROPATHY
     Dosage: TWO EVERY MORNING, ONE EVERY EVENING, ONE AT NIGHT
  16. SYNTHROID [Concomitant]
  17. PROTONIX [Concomitant]
  18. AMARYL [Concomitant]
  19. SERZONE [Concomitant]
     Dosage: 300 MG - 500 MG DAILY
     Route: 048
  20. CELEXA [Concomitant]
     Dosage: STRENGTH- 20 MG, 40 MG.  DOSE - 40 MG DAILY
     Route: 048
  21. REMERON [Concomitant]
     Dosage: HALF AT NIGHT. TOTAL DAILY DOSE 15 MG
     Route: 048
  22. RISPERDAL [Concomitant]
     Route: 048
  23. KLONOPIN [Concomitant]
     Dosage: HALF TWO TIMES A DAY. TOTAL DAILY DOSE 1 MG
     Route: 048

REACTIONS (4)
  - DIABETES MELLITUS [None]
  - DIABETIC NEUROPATHY [None]
  - TYPE 2 DIABETES MELLITUS [None]
  - VISION BLURRED [None]
